FAERS Safety Report 14340341 (Version 1)
Quarter: 2018Q1

REPORT INFORMATION
  Report Type: Report from Study
  Country: PK (occurrence: PK)
  Receive Date: 20180101
  Receipt Date: 20180101
  Transmission Date: 20180509
  Serious: Yes (Other)
  Sender: FDA-Public Use
  Company Number: PK-ROCHE-2045197

PATIENT

DRUGS (3)
  1. SOFOSBUVIR [Suspect]
     Active Substance: SOFOSBUVIR
     Indication: CHRONIC HEPATITIS C
     Route: 048
  2. PEG-INTERFERON ALFA 2A [Suspect]
     Active Substance: PEGINTERFERON ALFA-2A
     Indication: CHRONIC HEPATITIS C
     Route: 058
  3. RIBAVIRIN. [Suspect]
     Active Substance: RIBAVIRIN
     Indication: CHRONIC HEPATITIS C
     Dosage: 1000-1200 MG/D, ACCORDING TO PATIENT^S BODY WEIGHT
     Route: 065

REACTIONS (16)
  - Acute psychosis [Unknown]
  - Aggression [Unknown]
  - Depression [Unknown]
  - Anaemia [Unknown]
  - Alopecia [Unknown]
  - Thrombocytopenia [Unknown]
  - Rash [Unknown]
  - Facial paralysis [Unknown]
  - Decreased appetite [Unknown]
  - Leukopenia [Unknown]
  - Headache [Unknown]
  - Fatigue [Unknown]
  - Pruritus [Unknown]
  - Insomnia [Unknown]
  - Myalgia [Unknown]
  - Candida infection [Unknown]
